FAERS Safety Report 16826851 (Version 2)
Quarter: 2022Q3

REPORT INFORMATION
  Report Type: Other
  Country: CN (occurrence: HK)
  Receive Date: 20190919
  Receipt Date: 20220811
  Transmission Date: 20221027
  Serious: Yes (Death, Life-Threatening)
  Sender: FDA-Public Use
  Company Number: CN-ROCHE-2412329

PATIENT
  Age: 57 Year
  Sex: Male

DRUGS (12)
  1. ATEZOLIZUMAB [Suspect]
     Active Substance: ATEZOLIZUMAB
     Indication: Non-small cell lung cancer metastatic
     Route: 041
     Dates: start: 201802
  2. PEMETREXED [Concomitant]
     Active Substance: PEMETREXED
  3. CARBOPLATIN [Concomitant]
     Active Substance: CARBOPLATIN
  4. BEVACIZUMAB [Concomitant]
     Active Substance: BEVACIZUMAB
  5. PACLITAXEL [Concomitant]
     Active Substance: PACLITAXEL
  6. NEDAPLATIN [Concomitant]
     Active Substance: NEDAPLATIN
  7. METHYLPREDNISOLONE [Concomitant]
     Active Substance: METHYLPREDNISOLONE
  8. FUROSEMIDE [Concomitant]
     Active Substance: FUROSEMIDE
  9. AMIODARONE [Concomitant]
     Active Substance: AMIODARONE
  10. DIGOXIN [Concomitant]
     Active Substance: DIGOXIN
  11. ISOSORBIDE DINITRATE [Concomitant]
     Active Substance: ISOSORBIDE DINITRATE
  12. LEVOCARNITINE [Concomitant]
     Active Substance: LEVOCARNITINE

REACTIONS (4)
  - Multiple organ dysfunction syndrome [Fatal]
  - Cardiac dysfunction [Not Recovered/Not Resolved]
  - Thrombocytopenia [Not Recovered/Not Resolved]
  - Pneumonitis [Recovered/Resolved]
